FAERS Safety Report 11816703 (Version 1)
Quarter: 2015Q4

REPORT INFORMATION
  Report Type: Spontaneous
  Country: JP (occurrence: JP)
  Receive Date: 20151210
  Receipt Date: 20151210
  Transmission Date: 20160305
  Serious: Yes (Hospitalization, Other)
  Sender: FDA-Public Use
  Company Number: JP-ROCHE-1673812

PATIENT
  Age: 61 Year
  Sex: Female
  Weight: 68 kg

DRUGS (14)
  1. JZOLOFT [Suspect]
     Active Substance: SERTRALINE HYDROCHLORIDE
     Indication: DEPRESSION
     Route: 048
     Dates: end: 20150728
  2. VEGETAMIN A [Suspect]
     Active Substance: CHLORPROMAZINE HYDROCHLORIDE\PHENOBARBITAL\PROMETHAZINE
     Indication: DEPRESSION
     Route: 048
     Dates: end: 20150728
  3. EURODIN (JAPAN) [Suspect]
     Active Substance: ESTAZOLAM
     Indication: DEPRESSION
     Dosage: THE FRACTIONATION DOSE FREQUENCY IS UNCERTAIN.
     Route: 048
     Dates: end: 20150728
  4. CETILO [Suspect]
     Active Substance: SENNA LEAF
     Indication: PRODUCT USED FOR UNKNOWN INDICATION
     Route: 048
     Dates: end: 20150728
  5. ROHYPNOL [Suspect]
     Active Substance: FLUNITRAZEPAM
     Indication: DEPRESSION
     Dosage: THE FRACTIONATION DOSE FREQUENCY IS UNCERTAIN.
     Route: 048
     Dates: end: 20150728
  6. LIMAS [Suspect]
     Active Substance: LITHIUM CARBONATE
     Indication: DEPRESSION
     Route: 048
     Dates: end: 20150728
  7. LANSOPRAZOLE. [Suspect]
     Active Substance: LANSOPRAZOLE
     Indication: PRODUCT USED FOR UNKNOWN INDICATION
     Route: 048
     Dates: end: 20150728
  8. SENNOSIDE [Suspect]
     Active Substance: SENNOSIDES
     Indication: PRODUCT USED FOR UNKNOWN INDICATION
     Route: 048
     Dates: end: 20150728
  9. LOXOPROFEN [Suspect]
     Active Substance: LOXOPROFEN
     Indication: PRODUCT USED FOR UNKNOWN INDICATION
     Dosage: THE FRACTIONATION DOSE FREQUENCY IS UNCERTAIN.
     Route: 048
     Dates: end: 20150728
  10. REBAMIPIDE [Suspect]
     Active Substance: REBAMIPIDE
     Indication: PRODUCT USED FOR UNKNOWN INDICATION
     Route: 048
     Dates: end: 20150728
  11. RIVOTRIL [Suspect]
     Active Substance: CLONAZEPAM
     Indication: DEPRESSION
     Route: 048
     Dates: end: 20150728
  12. ZYPREXA [Suspect]
     Active Substance: OLANZAPINE
     Indication: DEPRESSION
     Route: 048
     Dates: end: 20150728
  13. VEGETAMIN B [Suspect]
     Active Substance: CHLORPROMAZINE HYDROCHLORIDE\PHENOBARBITAL\PROMETHAZINE
     Indication: DEPRESSION
     Route: 048
     Dates: end: 20150728
  14. EPERISONE HYDROCHLORIDE [Suspect]
     Active Substance: EPERISONE HYDROCHLORIDE
     Indication: PRODUCT USED FOR UNKNOWN INDICATION
     Dosage: THE FRACTIONATION DOSE FREQUENCY IS UNCERTAIN.
     Route: 048
     Dates: end: 20150728

REACTIONS (5)
  - Hyponatraemia [Recovered/Resolved]
  - Off label use [Unknown]
  - Water intoxication [Recovered/Resolved]
  - Neuroleptic malignant syndrome [Recovering/Resolving]
  - Thirst [Unknown]

NARRATIVE: CASE EVENT DATE: 20150725
